FAERS Safety Report 8935012 (Version 2)
Quarter: 2012Q4

REPORT INFORMATION
  Report Type: 
  Country: DE (occurrence: DE)
  Receive Date: 20121129
  Receipt Date: 20121227
  Transmission Date: 20130627
  Serious: Yes (Hospitalization, Other)
  Sender: FDA-Public Use
  Company Number: DE-B.I. PHARMACEUTICALS,INC./RIDGEFIELD-2012-DE-02776DE

PATIENT
  Age: 65 Year
  Sex: Female
  Weight: 82 kg

DRUGS (9)
  1. PRADAXA [Suspect]
     Dates: start: 201204
  2. EUTHYROX [Concomitant]
     Dosage: 100 NR
  3. MOXONIDIN [Concomitant]
     Dosage: 0.4 ng
  4. AMLODIPIN [Concomitant]
     Dosage: 10 NR
  5. BLOPRESS FORTE [Concomitant]
     Dosage: Strength: 32/25 DD:1x1
  6. BUDESONID [Concomitant]
     Dosage: DD: 1-0-0  spray
  7. TOREM [Concomitant]
     Dosage: 10 NR
  8. BRONCHOSPASMIN [Concomitant]
  9. PANTOPRAZOL [Concomitant]
     Dosage: 20 NR

REACTIONS (1)
  - Large intestine polyp [Recovered/Resolved]
